FAERS Safety Report 15044662 (Version 3)
Quarter: 2022Q3

REPORT INFORMATION
  Report Type: Spontaneous
  Country: TH (occurrence: TH)
  Receive Date: 20180621
  Receipt Date: 20220923
  Transmission Date: 20221027
  Serious: Yes (Other)
  Sender: FDA-Public Use
  Company Number: PHHY2018TH023680

PATIENT
  Age: 77 Year
  Sex: Female

DRUGS (3)
  1. ZYKADIA [Suspect]
     Active Substance: CERITINIB
     Indication: Product used for unknown indication
     Dosage: 750 MG, QD
     Route: 065
     Dates: start: 201610
  2. ZYKADIA [Suspect]
     Active Substance: CERITINIB
     Dosage: 600 MG (AFTER START OF 4 MONTH)
     Route: 065
  3. ZYKADIA [Suspect]
     Active Substance: CERITINIB
     Dosage: 450 MG, QD (AFTER START OF 13 MONTH)
     Route: 065
     Dates: end: 202202

REACTIONS (7)
  - Leukopenia [Unknown]
  - Neutropenia [Unknown]
  - Metastases to central nervous system [Unknown]
  - Disease progression [Unknown]
  - Head injury [Unknown]
  - Aspartate aminotransferase increased [Unknown]
  - Alanine aminotransferase increased [Unknown]

NARRATIVE: CASE EVENT DATE: 20210701
